FAERS Safety Report 7799150-1 (Version None)
Quarter: 2011Q4

REPORT INFORMATION
  Report Type: 
  Country: None (occurrence: None)
  Receive Date: 20111006
  Receipt Date: 20110930
  Transmission Date: 20120403
  Serious: Yes (Hospitalization, Other)
  Sender: FDA-Public Use
  Company Number: US-PFIZER INC-2005100005

PATIENT
  Sex: Female
  Weight: 56.689 kg

DRUGS (4)
  1. XANAX [Suspect]
     Indication: PANIC DISORDER WITH AGORAPHOBIA
     Dosage: 0.5 MG, 4X/DAY
     Route: 048
     Dates: start: 19930101
  2. XANAX [Suspect]
     Dosage: 1 MG, 4X/DAY
     Route: 048
     Dates: start: 19960101
  3. ELMIRON [Suspect]
     Indication: CYSTITIS INTERSTITIAL
     Dates: start: 20010101
  4. XANAX [Suspect]
     Dosage: 1.25 MG, 4X/DAY
     Route: 048
     Dates: start: 20010101

REACTIONS (12)
  - WEIGHT INCREASED [None]
  - NASOPHARYNGITIS [None]
  - OROPHARYNGEAL PAIN [None]
  - HEADACHE [None]
  - ORAL PAIN [None]
  - BREAST CANCER FEMALE [None]
  - VULVAL DISORDER [None]
  - PARAESTHESIA ORAL [None]
  - GINGIVAL PAIN [None]
  - PANIC DISORDER [None]
  - CYSTITIS INTERSTITIAL [None]
  - SOMNOLENCE [None]
